FAERS Safety Report 11193395 (Version 1)
Quarter: 2015Q2

REPORT INFORMATION
  Report Type: Spontaneous
  Country: CN (occurrence: CN)
  Receive Date: 20150616
  Receipt Date: 20150616
  Transmission Date: 20150821
  Serious: Yes (Death)
  Sender: FDA-Public Use
  Company Number: CN-MYLANLABS-2015M1018752

PATIENT

DRUGS (6)
  1. BLEOMYCIN [Concomitant]
     Active Substance: BLEOMYCIN SULFATE
     Indication: TRANSCATHETER ARTERIAL CHEMOEMBOLISATION
     Route: 013
  2. VINCRISTINE [Concomitant]
     Active Substance: VINCRISTINE
     Indication: HAEMANGIOMA-THROMBOCYTOPENIA SYNDROME
     Dosage: DF = 0.050-0.065MG/KG
     Route: 042
  3. IODIZED OIL [Concomitant]
     Active Substance: IODIZED OIL
     Indication: HAEMANGIOMA-THROMBOCYTOPENIA SYNDROME
  4. DEXAMETHASONE. [Suspect]
     Active Substance: DEXAMETHASONE
     Indication: OFF LABEL USE
  5. DEXAMETHASONE. [Suspect]
     Active Substance: DEXAMETHASONE
     Indication: HAEMANGIOMA-THROMBOCYTOPENIA SYNDROME
     Dosage: IV DRIP; 1-2MG/KG/DAY
     Route: 041
  6. PREDNISONE. [Suspect]
     Active Substance: PREDNISONE
     Indication: HAEMANGIOMA-THROMBOCYTOPENIA SYNDROME
     Dosage: 3-5MG/KG/DAY
     Route: 048

REACTIONS (2)
  - Post procedural infection [Fatal]
  - Lower respiratory tract infection fungal [Fatal]
